FAERS Safety Report 8415939-X (Version None)
Quarter: 2012Q2

REPORT INFORMATION
  Report Type: 
  Country: None (occurrence: None)
  Receive Date: 20120606
  Receipt Date: 20120523
  Transmission Date: 20120825
  Serious: No
  Sender: FDA-Public Use
  Company Number: US-ASTRAZENECA-2012SE33296

PATIENT
  Age: 60 Year
  Sex: Female
  Weight: 86.6 kg

DRUGS (1)
  1. NEXIUM [Suspect]
     Indication: GASTROOESOPHAGEAL REFLUX DISEASE
     Route: 048

REACTIONS (7)
  - NASAL DISORDER [None]
  - DYSPNOEA [None]
  - COUGH [None]
  - APHONIA [None]
  - MULTIPLE ALLERGIES [None]
  - BRONCHITIS [None]
  - EAR DISORDER [None]
